FAERS Safety Report 7171511-3 (Version None)
Quarter: 2010Q4

REPORT INFORMATION
  Report Type: 
  Country: None (occurrence: None)
  Receive Date: 20101217
  Receipt Date: 20101210
  Transmission Date: 20110411
  Serious: Yes (Hospitalization)
  Sender: FDA-Public Use
  Company Number: US-ABBOTT-10P-163-0691047-00

PATIENT
  Sex: Male
  Weight: 93.07 kg

DRUGS (2)
  1. HUMIRA [Suspect]
     Indication: CROHN'S DISEASE
     Dates: start: 20100831, end: 20101206
  2. VITAMINS [Concomitant]
     Indication: VITAMIN SUPPLEMENTATION

REACTIONS (6)
  - ABDOMINAL PAIN [None]
  - CROHN'S DISEASE [None]
  - DRUG INEFFECTIVE [None]
  - INTESTINAL ULCER [None]
  - PYREXIA [None]
  - TENDERNESS [None]
